FAERS Safety Report 9236563 (Version 2)
Quarter: 2013Q3

REPORT INFORMATION
  Report Type: Report from Study
  Country: CA (occurrence: CA)
  Receive Date: 20130417
  Receipt Date: 20130824
  Transmission Date: 20140515
  Serious: Yes (Death, Life-Threatening, Other)
  Sender: FDA-Public Use
  Company Number: CA-ROCHE-1213149

PATIENT
  Sex: Female
  Weight: 60 kg

DRUGS (15)
  1. RITUXAN [Suspect]
     Indication: DIFFUSE LARGE B-CELL LYMPHOMA
     Route: 042
     Dates: start: 201011
  2. RITUXAN [Suspect]
     Route: 065
     Dates: start: 20130102, end: 2013
  3. TREANDA [Suspect]
     Indication: DIFFUSE LARGE B-CELL LYMPHOMA
     Route: 065
     Dates: start: 20130301
  4. CYCLOPHOSPHAMIDE [Suspect]
     Indication: PRODUCT USED FOR UNKNOWN INDICATION
     Route: 065
  5. HYDROXYDAUNORUBICIN [Suspect]
     Indication: PRODUCT USED FOR UNKNOWN INDICATION
     Route: 065
  6. ONCOVIN [Suspect]
     Indication: PRODUCT USED FOR UNKNOWN INDICATION
     Route: 065
  7. PREDNISONE [Suspect]
     Indication: PRODUCT USED FOR UNKNOWN INDICATION
     Route: 065
  8. BENADRYL [Concomitant]
     Route: 042
     Dates: start: 20130102, end: 20130122
  9. TYLENOL [Concomitant]
     Route: 048
     Dates: start: 20130102, end: 20130122
  10. DEXAMETHASONE [Concomitant]
     Route: 042
     Dates: start: 20130102, end: 20130122
  11. SYNTHROID [Concomitant]
  12. ATENOLOL [Concomitant]
  13. METFORMIN [Concomitant]
  14. PANTOPRAZOLE [Concomitant]
  15. LYRICA [Concomitant]

REACTIONS (4)
  - Death [Fatal]
  - Recurrent cancer [Unknown]
  - Stem cell transplant [Unknown]
  - Drug ineffective [Unknown]
